FAERS Safety Report 18554429 (Version 1)
Quarter: 2020Q4

REPORT INFORMATION
  Report Type: Spontaneous
  Country: FR (occurrence: FR)
  Receive Date: 20201127
  Receipt Date: 20201127
  Transmission Date: 20210114
  Serious: Yes (Life-Threatening, Other)
  Sender: FDA-Public Use
  Company Number: FR-JNJFOC-20201149941

PATIENT
  Age: 3 Year
  Sex: Male
  Weight: 19 kg

DRUGS (4)
  1. NIFLURIL [Concomitant]
     Indication: PRODUCT USED FOR UNKNOWN INDICATION
     Dosage: 1 DOSAGE FORM, 1/DAY
     Route: 054
     Dates: start: 20201001
  2. TRAMADOL HYDROCHLORIDE. [Suspect]
     Active Substance: TRAMADOL HYDROCHLORIDE
     Indication: PRODUCT USED FOR UNKNOWN INDICATION
     Dosage: 180 DROP, 1/DAY
     Route: 048
     Dates: start: 20201001, end: 20201001
  3. PARACETAMOL [Concomitant]
     Active Substance: ACETAMINOPHEN
     Indication: PRODUCT USED FOR UNKNOWN INDICATION
     Dosage: 45 MILLIGRAM/KILOGRAM, 1/DAY
     Route: 048
     Dates: start: 20200930
  4. CELESTENE [BETAMETHASONE] [Concomitant]
     Active Substance: BETAMETHASONE
     Indication: PRODUCT USED FOR UNKNOWN INDICATION
     Dosage: 180 DROP, 1/DAY
     Route: 048
     Dates: start: 20200930

REACTIONS (6)
  - Respiratory distress [Recovered/Resolved]
  - Incorrect dose administered [Recovered/Resolved]
  - Overdose [Recovered/Resolved]
  - Coma [Recovered/Resolved]
  - Seizure [Recovered/Resolved]
  - Product communication issue [Recovered/Resolved]

NARRATIVE: CASE EVENT DATE: 20201002
